FAERS Safety Report 6028628-6 (Version None)
Quarter: 2009Q1

REPORT INFORMATION
  Report Type: 
  Country: None (occurrence: None)
  Receive Date: 20090105
  Receipt Date: 20090105
  Transmission Date: 20090719
  Serious: Yes (Other)
  Sender: FDA-Public Use
  Company Number: None

PATIENT
  Age: 75 Year
  Sex: Male
  Weight: 75.5 kg

DRUGS (1)
  1. MOXIFLOXACIN HCL [Suspect]
     Dosage: 400 MG EVERY DAY PO
     Route: 048
     Dates: start: 20081026, end: 20081027

REACTIONS (3)
  - AMNESIA [None]
  - DELIRIUM [None]
  - PSYCHOTIC DISORDER [None]
